FAERS Safety Report 4720503-X (Version None)
Quarter: 2005Q3

REPORT INFORMATION
  Report Type: 
  Country: None (occurrence: None)
  Receive Date: 20050721
  Receipt Date: 20050223
  Transmission Date: 20060218
  Serious: Yes (Other)
  Sender: FDA-Public Use
  Company Number: US-BRISTOL-MYERS SQUIBB COMPANY-12873709

PATIENT
  Age: 68 Year
  Sex: Female
  Weight: 91 kg

DRUGS (7)
  1. GLUCOVANCE [Suspect]
     Indication: DIABETES MELLITUS
  2. SYNTHROID [Concomitant]
  3. ASPIRIN [Concomitant]
  4. DETROL LA [Concomitant]
  5. AVAPRO [Concomitant]
  6. PROTONIX [Concomitant]
  7. METOPROLOL [Concomitant]

REACTIONS (1)
  - BLOOD GLUCOSE INCREASED [None]
